FAERS Safety Report 24667449 (Version 1)
Quarter: 2024Q4

REPORT INFORMATION
  Report Type: Spontaneous
  Country: CN (occurrence: CN)
  Receive Date: 20241126
  Receipt Date: 20241126
  Transmission Date: 20250114
  Serious: Yes (Hospitalization, Other)
  Sender: JOHNSON AND JOHNSON
  Company Number: CN-KENVUE-20241103917

PATIENT
  Age: 8 Year
  Sex: Female

DRUGS (6)
  1. ACETAMINOPHEN [Suspect]
     Active Substance: ACETAMINOPHEN
     Indication: Pyrexia
     Dosage: 8 MILLILITER, TWO TIMES
     Route: 065
     Dates: start: 20241102, end: 20241105
  2. ACETAMINOPHEN [Suspect]
     Active Substance: ACETAMINOPHEN
     Indication: Eyelid thickening
     Dosage: ALTERNATELY ADMINISTERED EVERY 4 HOURS
     Route: 065
     Dates: start: 20241103, end: 20241105
  3. ACETAMINOPHEN [Suspect]
     Active Substance: ACETAMINOPHEN
     Dosage: UNK
     Route: 065
     Dates: start: 20241104, end: 20241105
  4. CHILDRENS MOTRIN [Suspect]
     Active Substance: IBUPROFEN
     Indication: Pyrexia
     Dosage: 8 MILLILITER, ONE TIME
     Route: 065
     Dates: start: 20241102, end: 20241105
  5. CHILDRENS MOTRIN [Suspect]
     Active Substance: IBUPROFEN
     Dosage: 8 MILLILITER, ALTERNATELY ADMINISTERED EVERY 4 HOURS
     Route: 065
     Dates: start: 20241103, end: 20241105
  6. CHILDRENS MOTRIN [Suspect]
     Active Substance: IBUPROFEN
     Dosage: UNK
     Route: 065
     Dates: start: 20241104, end: 20241105

REACTIONS (8)
  - Pyrexia [Unknown]
  - Product administration error [Unknown]
  - Dermatitis exfoliative [Unknown]
  - Ocular hyperaemia [Unknown]
  - Infectious mononucleosis [Unknown]
  - Corneal disorder [Unknown]
  - Dysuria [Unknown]
  - Secretion discharge [Unknown]

NARRATIVE: CASE EVENT DATE: 20241101
